FAERS Safety Report 18478365 (Version 1)
Quarter: 2020Q4

REPORT INFORMATION
  Report Type: Other
  Country: DE (occurrence: DE)
  Receive Date: 20201109
  Receipt Date: 20201109
  Transmission Date: 20210114
  Serious: No
  Sender: FDA-Public Use
  Company Number: DE-ROCHE-2456306

PATIENT
  Age: 56 Year
  Sex: Female
  Weight: 73 kg

DRUGS (18)
  1. OCRELIZUMAB. [Suspect]
     Active Substance: OCRELIZUMAB
     Indication: MULTIPLE SCLEROSIS
     Route: 042
     Dates: start: 20180504
  2. OPIPRAM [Concomitant]
     Active Substance: OPIPRAMOL HYDROCHLORIDE
     Route: 048
  3. METAMIZOLE [Concomitant]
     Active Substance: METAMIZOLE
     Indication: PAIN
     Route: 048
  4. AERIUS [Concomitant]
     Route: 048
     Dates: start: 201805
  5. PREDNISOLUT [Concomitant]
     Active Substance: PREDNISOLONE
     Route: 048
     Dates: start: 201805
  6. NITROXOLINE [Concomitant]
     Active Substance: NITROXOLINE
     Route: 048
     Dates: start: 201804, end: 201804
  7. OXYCODONE [Concomitant]
     Active Substance: OXYCODONE
     Indication: PAIN
     Route: 048
  8. LEVOFLOXACIN. [Concomitant]
     Active Substance: LEVOFLOXACIN
     Indication: URINARY TRACT INFECTION
     Route: 048
     Dates: start: 20180511, end: 20180515
  9. RANITIDINE. [Concomitant]
     Active Substance: RANITIDINE
     Route: 048
     Dates: start: 201805
  10. LOPERAMIDE [Concomitant]
     Active Substance: LOPERAMIDE
     Indication: DIARRHOEA
     Dosage: DEFINITION OF THE INTERVAL: AS REQUIRED
     Route: 048
  11. OCRELIZUMAB. [Suspect]
     Active Substance: OCRELIZUMAB
     Route: 042
     Dates: start: 20180518
  12. OCRELIZUMAB. [Suspect]
     Active Substance: OCRELIZUMAB
     Route: 042
     Dates: start: 20190516
  13. NEXIUM [Concomitant]
     Active Substance: ESOMEPRAZOLE MAGNESIUM
     Dosage: DEFINITION OF THE INTERVAL: AS REQUIRED
     Route: 048
     Dates: start: 201803, end: 20180701
  14. OCRELIZUMAB. [Suspect]
     Active Substance: OCRELIZUMAB
     Route: 042
     Dates: start: 20181106
  15. KATADOLON [Concomitant]
     Active Substance: FLUPIRTINE
     Dosage: DEFINITION OF THE INTERVAL: AS REQUIRED
     Route: 048
     Dates: start: 201802, end: 20180315
  16. PANTOPRAZOLE [Concomitant]
     Active Substance: PANTOPRAZOLE
     Route: 048
     Dates: start: 201805
  17. NOVALGIN (METAMIZOLE SODIUM) [Concomitant]
     Active Substance: METAMIZOLE SODIUM
     Indication: PAIN
     Route: 048
  18. DEKRISTOL [Concomitant]
     Active Substance: CHOLECALCIFEROL
     Indication: VITAMIN D DEFICIENCY
     Route: 048
     Dates: start: 2013

REACTIONS (4)
  - Urinary tract infection [Recovered/Resolved]
  - Oral herpes [Unknown]
  - Urinary tract infection [Recovered/Resolved]
  - Abdominal pain [Unknown]

NARRATIVE: CASE EVENT DATE: 20190503
